FAERS Safety Report 9185958 (Version 1)
Quarter: 2013Q1

REPORT INFORMATION
  Report Type: Spontaneous
  Country: US (occurrence: US)
  Receive Date: 20130325
  Receipt Date: 20130325
  Transmission Date: 20140127
  Serious: No
  Sender: FDA-Public Use
  Company Number: US-PFIZER INC-2013091206

PATIENT
  Age: 51 Year
  Sex: Female

DRUGS (1)
  1. ADVIL ALLERGY SINUS [Suspect]
     Indication: SINUSITIS
     Dosage: UNK, ONCE
     Dates: start: 20130220, end: 20130220

REACTIONS (2)
  - Head discomfort [Recovered/Resolved]
  - Nausea [Recovered/Resolved]
